FAERS Safety Report 24000710 (Version 3)
Quarter: 2025Q1

REPORT INFORMATION
  Report Type: Spontaneous
  Country: US (occurrence: US)
  Receive Date: 20240621
  Receipt Date: 20250317
  Transmission Date: 20250409
  Serious: No
  Sender: PFIZER
  Company Number: US-PFIZER INC-202400099467

PATIENT
  Age: 65 Year
  Sex: Female

DRUGS (3)
  1. VELSIPITY [Suspect]
     Active Substance: ETRASIMOD ARGININE
     Dosage: 2 MG, DAILY
     Dates: start: 202404
  2. ROSUVASTATIN [Concomitant]
     Active Substance: ROSUVASTATIN
     Indication: Blood cholesterol increased
  3. BIOTIN [Concomitant]
     Active Substance: BIOTIN
     Indication: Supplementation therapy

REACTIONS (1)
  - Faecal calprotectin increased [Recovering/Resolving]

NARRATIVE: CASE EVENT DATE: 20241001
